FAERS Safety Report 8171330-5 (Version None)
Quarter: 2012Q1

REPORT INFORMATION
  Report Type: 
  Country: None (occurrence: None)
  Receive Date: 20120228
  Receipt Date: 20120220
  Transmission Date: 20120608
  Serious: Yes (Hospitalization)
  Sender: FDA-Public Use
  Company Number: DE-MERCK-1201DEU00049

PATIENT
  Age: 84 Year
  Sex: Male
  Weight: 70 kg

DRUGS (5)
  1. TORSEMIDE [Concomitant]
     Route: 048
  2. METOPROLOL SUCCINATE [Concomitant]
     Route: 048
  3. ZOCOR [Suspect]
     Route: 048
     Dates: end: 20110701
  4. PANTOPRAZOLE SODIUM [Concomitant]
     Route: 048
  5. CLOPIDOGREL BISULFATE [Concomitant]
     Route: 048

REACTIONS (3)
  - RHABDOMYOLYSIS [None]
  - BILE DUCT STONE [None]
  - CHOLANGITIS [None]
